FAERS Safety Report 16586171 (Version 1)
Quarter: 2019Q3

REPORT INFORMATION
  Report Type: Spontaneous
  Country: US (occurrence: US)
  Receive Date: 20190604
  Receipt Date: 20190604
  Transmission Date: 20191004
  Serious: No
  Sender: FDA-Public Use
  Company Number: None

PATIENT

DRUGS (1)
  1. TRISENOX [Suspect]
     Active Substance: ARSENIC TRIOXIDE

REACTIONS (1)
  - Product preparation error [None]
